FAERS Safety Report 4909268-6 (Version None)
Quarter: 2006Q1

REPORT INFORMATION
  Report Type: 
  Country: None (occurrence: None)
  Receive Date: 20060213
  Receipt Date: 20060202
  Transmission Date: 20060701
  Serious: Yes (Other)
  Sender: FDA-Public Use
  Company Number: US-JNJFOC-20060201100

PATIENT
  Sex: Female
  Weight: 68.04 kg

DRUGS (16)
  1. REMICADE [Suspect]
     Indication: ANKYLOSING SPONDYLITIS
     Route: 042
  2. REMICADE [Suspect]
     Indication: RHEUMATOID ARTHRITIS
     Route: 042
  3. METHOTREXATE [Concomitant]
     Indication: RHEUMATOID ARTHRITIS
  4. PRILOSEC [Concomitant]
  5. FOSAMAX [Concomitant]
     Indication: OSTEOPOROSIS
  6. XANAX [Concomitant]
     Indication: DEPRESSION
  7. LEXAPRO [Concomitant]
     Indication: DEPRESSION
  8. FOLIC ACID [Concomitant]
     Indication: RHEUMATOID ARTHRITIS
  9. MULTI-VITAMIN [Concomitant]
  10. MULTI-VITAMIN [Concomitant]
  11. MULTI-VITAMIN [Concomitant]
  12. MULTI-VITAMIN [Concomitant]
  13. MULTI-VITAMIN [Concomitant]
  14. MULTI-VITAMIN [Concomitant]
  15. MULTI-VITAMIN [Concomitant]
  16. MULTI-VITAMIN [Concomitant]
     Indication: OSTEOPOROSIS

REACTIONS (4)
  - BASAL CELL CARCINOMA [None]
  - PRURITUS [None]
  - RASH PRURITIC [None]
  - SINUSITIS [None]
